FAERS Safety Report 11772043 (Version 2)
Quarter: 2015Q4

REPORT INFORMATION
  Report Type: Spontaneous
  Country: JP (occurrence: JP)
  Receive Date: 20151124
  Receipt Date: 20151224
  Transmission Date: 20160304
  Serious: Yes (Hospitalization)
  Sender: FDA-Public Use
  Company Number: JP-AMGEN-JPNSP2014044329

PATIENT
  Age: 49 Year
  Sex: Male
  Weight: 94 kg

DRUGS (13)
  1. NU-LOTAN [Concomitant]
     Active Substance: LOSARTAN POTASSIUM
     Dosage: 1 UNK, QD
     Route: 048
  2. MYSLEE [Concomitant]
     Active Substance: ZOLPIDEM TARTRATE
     Dosage: 2 UNK, QD
     Route: 048
  3. THYRADIN [Concomitant]
     Active Substance: LEVOTHYROXINE
     Dosage: 2 UNK, QD
     Route: 048
  4. DENOTAS [Suspect]
     Active Substance: CALCIUM CARBONATE\CHOLECALCIFEROL\MAGNESIUM CARBONATE
     Indication: PRODUCT USED FOR UNKNOWN INDICATION
     Dosage: 2 UNK, QD
     Route: 048
     Dates: start: 20140523
  5. DEGARELIX ACETATE [Suspect]
     Active Substance: DEGARELIX ACETATE
     Indication: PRODUCT USED FOR UNKNOWN INDICATION
     Dosage: UNK
     Route: 065
  6. LASIX [Concomitant]
     Active Substance: FUROSEMIDE
     Dosage: 1 UNK, QD
     Route: 048
  7. NEXIUM [Concomitant]
     Active Substance: ESOMEPRAZOLE MAGNESIUM
     Dosage: 1 UNK, QD
     Route: 048
  8. RANMARK [Suspect]
     Active Substance: DENOSUMAB
     Indication: METASTASES TO BONE
     Dosage: 120 MG, UNK
     Route: 058
     Dates: start: 20140523, end: 20140523
  9. ARTIST [Concomitant]
     Active Substance: CARVEDILOL
     Dosage: 3 UNK, QD
     Route: 048
  10. TRAMCET [Concomitant]
     Active Substance: ACETAMINOPHEN\TRAMADOL
     Dosage: 4 UNK, QID
     Route: 048
     Dates: start: 20140409
  11. GONAX [Concomitant]
     Active Substance: DEGARELIX
     Indication: PROSTATE CANCER
     Dosage: 1 UNK, QD
     Route: 058
     Dates: start: 20140328
  12. BICALUTAMIDE. [Suspect]
     Active Substance: BICALUTAMIDE
     Indication: PROSTATE CANCER
     Dosage: 1 UNK, QD
     Route: 048
     Dates: start: 20140328
  13. ANCARON [Concomitant]
     Active Substance: AMIODARONE HYDROCHLORIDE
     Dosage: 2 UNK, BID
     Route: 048

REACTIONS (2)
  - Hypocalcaemia [Recovering/Resolving]
  - Hungry bone syndrome [Recovered/Resolved]

NARRATIVE: CASE EVENT DATE: 20140530
